FAERS Safety Report 17366185 (Version 1)
Quarter: 2020Q1

REPORT INFORMATION
  Report Type: Spontaneous
  Country: CH (occurrence: CH)
  Receive Date: 20200204
  Receipt Date: 20200204
  Transmission Date: 20200409
  Serious: Yes (Hospitalization, Other)
  Sender: FDA-Public Use
  Company Number: CH-GLAXOSMITHKLINE-CH2020014321

PATIENT
  Age: 26 Year
  Sex: Male

DRUGS (3)
  1. RISPERDAL CONSTA [Concomitant]
     Active Substance: RISPERIDONE
     Indication: PRODUCT USED FOR UNKNOWN INDICATION
     Dosage: UNKNOWN START DATE OF THERAPY; LAST ADMINISTRATION ON 04.12.2019
     Route: 030
     Dates: end: 20191204
  2. XANAX [Concomitant]
     Active Substance: ALPRAZOLAM
     Indication: PRODUCT USED FOR UNKNOWN INDICATION
     Dosage: RESERVE THERAPY, AS NEEDED IN CASE OF ANXIETY AND / OR AGITATION
     Route: 048
  3. LAMICTAL [Suspect]
     Active Substance: LAMOTRIGINE
     Indication: SUICIDE ATTEMPT
     Dosage: THE PATIENT TAKES 56 LAMICTAL 50 MG TABLETS (TOTAL 2.8 G) AT ONE TIME, FOR SUICIDAL PURPOSE
     Route: 048
     Dates: start: 20191215, end: 20191215

REACTIONS (7)
  - Suicide attempt [Recovered/Resolved]
  - Tachycardia [Recovered/Resolved]
  - Dysarthria [Recovered/Resolved]
  - Psychomotor retardation [Recovered/Resolved]
  - Intentional overdose [Recovered/Resolved]
  - Vision blurred [Recovered/Resolved]
  - Asthenia [Recovered/Resolved]

NARRATIVE: CASE EVENT DATE: 20191215
